FAERS Safety Report 8162289-5 (Version None)
Quarter: 2012Q1

REPORT INFORMATION
  Report Type: 
  Country: None (occurrence: None)
  Receive Date: 20120224
  Receipt Date: 20120217
  Transmission Date: 20120608
  Serious: Yes (Death, Life-Threatening, Other)
  Sender: FDA-Public Use
  Company Number: JP-CELGENEUS-087-50794-11121407

PATIENT
  Sex: Male
  Weight: 72 kg

DRUGS (8)
  1. LANSOPRAZOLE [Concomitant]
     Route: 065
  2. VIDAZA [Suspect]
     Indication: MYELODYSPLASTIC SYNDROME
     Dosage: 75 MILLIGRAM/SQ. METER
     Route: 041
     Dates: start: 20111115, end: 20111119
  3. ACETAMINOPHEN [Concomitant]
     Route: 065
  4. LIPIDIL [Concomitant]
     Route: 065
  5. COTRIM [Concomitant]
     Route: 065
     Dates: start: 20111115
  6. VIDAZA [Suspect]
     Dosage: 75 MILLIGRAM/SQ. METER
     Route: 041
     Dates: start: 20111121, end: 20111122
  7. PRIMOBOLAN-DEPOT INJ [Concomitant]
     Route: 065
  8. NAPROXEN [Concomitant]
     Route: 065

REACTIONS (4)
  - LIVER DISORDER [None]
  - RENAL DISORDER [None]
  - MULTI-ORGAN FAILURE [None]
  - BLOOD PRESSURE DECREASED [None]
